FAERS Safety Report 4610175-7 (Version None)
Quarter: 2005Q1

REPORT INFORMATION
  Report Type: 
  Country: None (occurrence: None)
  Receive Date: 20050316
  Receipt Date: 20050225
  Transmission Date: 20050727
  Serious: Yes (Death, Other)
  Sender: FDA-Public Use
  Company Number: PHEH2005US02509

PATIENT
  Age: 80 Year
  Sex: Female

DRUGS (22)
  1. ZOMETA [Suspect]
     Indication: MULTIPLE MYELOMA
     Dosage: 4MG Q4WK OVER 20-25MIN
     Dates: start: 20020114, end: 20020701
  2. ZOMETA [Suspect]
     Dosage: 2MG Q4WK OVER 20-25 MIN
     Dates: start: 20020729, end: 20020930
  3. ZOMETA [Suspect]
     Dosage: 4MG Q4WK OVER 20-25 MIN
     Dates: start: 20021028, end: 20021125
  4. ZOMETA [Suspect]
     Dosage: 4MG Q4WK OVER 60 MIN
     Dates: start: 20030804, end: 20030902
  5. AREDIA [Suspect]
     Indication: MULTIPLE MYELOMA
     Dosage: 90MG Q4WK
     Dates: start: 20000821, end: 20011203
  6. AREDIA [Suspect]
     Dosage: 30MG ONE DOSE
     Dates: start: 20030317, end: 20030317
  7. AREDIA [Suspect]
     Dosage: 60MG Q4WK OVER 2 HRS
     Dates: start: 20030411, end: 20030707
  8. AREDIA [Suspect]
     Dosage: 30MG Q4WK OVER 2HRS
     Dates: start: 20030929, end: 20040126
  9. ALKERAN [Concomitant]
     Dates: start: 20000808, end: 20010702
  10. PREDNISONE TABLETS USP (NGX) [Concomitant]
     Dates: start: 20000808, end: 20010702
  11. DOXIL [Concomitant]
     Dates: start: 20020212, end: 20020827
  12. ONCOVIN [Concomitant]
     Dates: start: 20020212, end: 20020827
  13. DECADRON                                /CAN/ [Concomitant]
     Dates: start: 20020212, end: 20020827
  14. DECADRON                                /CAN/ [Concomitant]
     Dosage: UNK
  15. VELCADE [Concomitant]
     Dates: start: 20040119, end: 20040401
  16. TRISENOX [Concomitant]
     Dates: start: 20040622, end: 20040720
  17. PRINIVIL [Concomitant]
  18. SOTALOL HCL [Concomitant]
  19. NORVASC [Concomitant]
  20. COMPAZINE [Concomitant]
  21. ALLOPURINOL TABLETS USP (NGX) [Concomitant]
  22. COUMADIN [Concomitant]
     Dosage: 1MG UNK

REACTIONS (10)
  - ATRIAL FIBRILLATION [None]
  - BACTERIAL INFECTION [None]
  - BONE DEBRIDEMENT [None]
  - BONE DISORDER [None]
  - DENTURE WEARER [None]
  - HYPERTENSION [None]
  - MULTIPLE MYELOMA [None]
  - ORAL SOFT TISSUE DISORDER [None]
  - OSTEONECROSIS [None]
  - RENAL FAILURE [None]
